FAERS Safety Report 7647915-9 (Version None)
Quarter: 2011Q3

REPORT INFORMATION
  Report Type: 
  Country: None (occurrence: None)
  Receive Date: 20110801
  Receipt Date: 20110126
  Transmission Date: 20111222
  Serious: Yes (Hospitalization, Other)
  Sender: FDA-Public Use
  Company Number: US-BAYER-200939988NA

PATIENT
  Age: 51 Year
  Sex: Male
  Weight: 75 kg

DRUGS (45)
  1. ALLOPURINOL [Concomitant]
  2. COREG [Concomitant]
  3. TRAZODONE HYDROCHLORIDE [Concomitant]
  4. ZAROXOLYN [Concomitant]
  5. CITALOPRAM HYDROBROMIDE [Concomitant]
  6. VERSED [Concomitant]
     Dosage: UNK
     Route: 042
     Dates: start: 20030311
  7. CRYOPRECIPITATES [Concomitant]
     Dosage: 6 U, UNK
     Route: 042
     Dates: start: 20030311
  8. TRASYLOL [Suspect]
     Indication: CORONARY ARTERY BYPASS
     Dosage: 100 ML (LOADING)
     Route: 042
     Dates: start: 20030311
  9. AMOXICILLIN [Concomitant]
  10. TRIAMCINOLONE ACETONIDE [Concomitant]
  11. AMICAR [Concomitant]
     Dosage: 10 G, UNK
     Route: 042
     Dates: start: 20030311
  12. FERROUS FUMARATE [Concomitant]
  13. BUPROPION HYDROCHLORIDE [Concomitant]
  14. OMEPRAZOLE [Concomitant]
  15. HEPARIN [Concomitant]
     Dosage: UNK
     Route: 042
     Dates: start: 20030311
  16. ANCEF [Concomitant]
     Dosage: 1 G, UNK
     Route: 042
     Dates: start: 20030311
  17. CALCIUM CHLORIDE [Concomitant]
     Dosage: 1 G, UNK
     Route: 042
     Dates: start: 20030311
  18. ROCURONIUM BROMIDE [Concomitant]
     Dosage: 70 MG, UNK
     Route: 042
     Dates: start: 20030311
  19. PRILOSEC [Concomitant]
  20. SUFENTA PRESERVATIVE FREE [Concomitant]
     Dosage: 60 MG, UNK
     Route: 042
     Dates: start: 20030311
  21. INSULIN [Concomitant]
     Dosage: 5 UNITS/HR DRIP
     Route: 042
     Dates: start: 20030311
  22. FRESH FROZEN PLASMA [Concomitant]
     Dosage: 8 U, UNK
     Route: 042
     Dates: start: 20030311
  23. HUMULIN R [Concomitant]
     Dosage: 100 U, UNK
  24. ABILIFY [Concomitant]
  25. STRATTERA [Concomitant]
  26. ZOLPIDEM TARTRATE [Concomitant]
  27. DOPAMINE HCL [Concomitant]
     Dosage: 3/5/3 UNK
     Route: 042
     Dates: start: 20030311
  28. NIMBEX [Concomitant]
     Dosage: 4/6 UNK
     Route: 042
     Dates: start: 20030311
  29. ATIVAN [Concomitant]
  30. LEVOPHED [Concomitant]
     Dosage: UNK
     Route: 042
     Dates: start: 20030311
  31. CALCIUM CARBONATE [Concomitant]
  32. CAPOTEN [Concomitant]
  33. DEMADEX [Concomitant]
  34. NEURONTIN [Concomitant]
  35. HUMULIN N [Concomitant]
     Dosage: 100 U, UNK
  36. LASIX [Concomitant]
  37. PLATELETS [Concomitant]
     Dosage: 2 U, UNK
     Route: 042
     Dates: start: 20030311
  38. TRASYLOL [Suspect]
     Indication: AORTIC VALVE REPLACEMENT
     Dosage: 1 ML, ONCE (INITIAL)
     Route: 042
     Dates: start: 20030311
  39. TRASYLOL [Suspect]
     Dosage: 25 ML/HR (INFUSION)
     Route: 042
     Dates: start: 20030311
  40. DIGOXIN [Concomitant]
  41. EFFEXOR XR [Concomitant]
  42. DIFLUCAN [Concomitant]
  43. VICODIN [Concomitant]
  44. HUMALOG [Concomitant]
  45. PROPOFOL [Concomitant]
     Dosage: 100 MG, UNK
     Route: 042
     Dates: start: 20030311

REACTIONS (11)
  - RENAL FAILURE [None]
  - PAIN [None]
  - RENAL INJURY [None]
  - ANXIETY [None]
  - FEAR [None]
  - INJURY [None]
  - EMOTIONAL DISTRESS [None]
  - STRESS [None]
  - UNEVALUABLE EVENT [None]
  - RENAL IMPAIRMENT [None]
  - ANHEDONIA [None]
